FAERS Safety Report 8838717 (Version 1)
Quarter: 2012Q4

REPORT INFORMATION
  Report Type: 
  Country: US (occurrence: US)
  Receive Date: 20121012
  Receipt Date: 20121012
  Transmission Date: 20130627
  Serious: Yes (Hospitalization)
  Sender: FDA-Public Use
  Company Number: US-ASTRAZENECA-2012SE76559

PATIENT
  Age: 64 Year
  Sex: Female
  Weight: 66.7 kg

DRUGS (20)
  1. NEXIUM [Suspect]
     Indication: GASTROOESOPHAGEAL REFLUX DISEASE
     Route: 048
     Dates: start: 2003, end: 2008
  2. NEXIUM [Suspect]
     Indication: GASTROOESOPHAGEAL REFLUX DISEASE
     Route: 048
     Dates: start: 2010
  3. PRILOSEC [Suspect]
     Indication: GASTROOESOPHAGEAL REFLUX DISEASE
     Route: 048
     Dates: start: 2008, end: 2010
  4. LISINOPRIL [Concomitant]
     Indication: HYPERTENSION
     Dates: end: 20120429
  5. ATORVASTATIN [Concomitant]
     Indication: BLOOD CHOLESTEROL INCREASED
     Dates: start: 20120809
  6. SIMVASTATIN [Concomitant]
     Indication: BLOOD CHOLESTEROL INCREASED
     Route: 048
     Dates: end: 20120809
  7. MORPHINE ER [Concomitant]
     Indication: PAIN
     Route: 048
     Dates: start: 201202
  8. OXYCONTIN [Concomitant]
     Indication: PAIN
     Dosage: TWO TIMES A DAY
     Route: 048
     Dates: end: 201202
  9. NORCO [Concomitant]
     Indication: PAIN
     Route: 048
     Dates: start: 2002
  10. XANAX [Concomitant]
     Indication: ANXIETY
     Route: 048
     Dates: start: 1982
  11. XANAX [Concomitant]
     Indication: ANXIETY
     Route: 048
     Dates: start: 1982
  12. BACLOFEN [Concomitant]
     Indication: ARTHRITIS
     Route: 048
     Dates: start: 1997
  13. IMITREX [Concomitant]
     Indication: HEADACHE
     Route: 048
     Dates: start: 1997
  14. AZULFIDINE [Concomitant]
     Indication: ARTHRITIS
  15. AMLODIPINE [Concomitant]
     Indication: HYPERTENSION
     Dates: start: 2008
  16. OXYCODONE APP [Concomitant]
     Indication: PAIN
     Dosage: 5 MG/325 MG TWO TIMES A DAY
     Dates: start: 2011
  17. CITALOPRAM [Concomitant]
     Indication: DEPRESSION
     Dates: start: 201203, end: 20120429
  18. NUVIGIL [Concomitant]
     Indication: SLEEP DISORDER
     Dates: start: 20120801, end: 20120808
  19. VIT D [Concomitant]
  20. CALCIUM WITH VIT D [Concomitant]

REACTIONS (9)
  - Syncope [Unknown]
  - Contusion [Unknown]
  - Cerebral haematoma [Unknown]
  - Urinary retention [Unknown]
  - Thyroid disorder [Unknown]
  - Restless legs syndrome [Unknown]
  - Sleep disorder [Unknown]
  - Off label use [Unknown]
  - Drug ineffective [Unknown]
